FAERS Safety Report 9378575 (Version 1)
Quarter: 2013Q3

REPORT INFORMATION
  Report Type: Spontaneous
  Country: DE (occurrence: DE)
  Receive Date: 20130702
  Receipt Date: 20130702
  Transmission Date: 20140515
  Serious: Yes (Death, Life-Threatening, Hospitalization)
  Sender: FDA-Public Use
  Company Number: DE-ROCHE-1242707

PATIENT
  Sex: Female
  Weight: 56 kg

DRUGS (4)
  1. AVASTIN [Suspect]
     Indication: COLON CANCER METASTATIC
     Route: 042
     Dates: start: 20121210, end: 20130502
  2. FLUOROURACIL [Concomitant]
     Indication: COLON CANCER METASTATIC
     Route: 042
     Dates: start: 20121210, end: 20130503
  3. LEUCOVORIN [Concomitant]
     Indication: COLON CANCER METASTATIC
     Route: 042
     Dates: start: 20121210, end: 20130502
  4. OXALIPLATIN [Concomitant]
     Indication: COLON CANCER METASTATIC
     Route: 042
     Dates: start: 20121210, end: 20130502

REACTIONS (3)
  - Malignant neoplasm progression [Fatal]
  - Large intestine perforation [Not Recovered/Not Resolved]
  - Diverticulitis [Not Recovered/Not Resolved]
